FAERS Safety Report 4816618-8 (Version None)
Quarter: 2005Q4

REPORT INFORMATION
  Report Type: 
  Country: None (occurrence: None)
  Receive Date: 20051028
  Receipt Date: 20051018
  Transmission Date: 20060501
  Serious: Yes (Other)
  Sender: FDA-Public Use
  Company Number: 005878

PATIENT
  Age: 57 Year
  Sex: Male
  Weight: 88.4 kg

DRUGS (6)
  1. ZIAC [Suspect]
     Indication: HYPERTENSION
     Dosage: 1 TABLET, QD, ORAL
     Route: 048
     Dates: start: 20030101, end: 20051010
  2. LUVOX [Concomitant]
  3. VICODIN [Concomitant]
  4. DURAGESIC-100 [Concomitant]
  5. PROVIGIL [Concomitant]
  6. TESTOSTERONE [Concomitant]

REACTIONS (4)
  - BLOOD GLUCOSE INCREASED [None]
  - BLOOD PRESSURE INCREASED [None]
  - POLYCYTHAEMIA VERA [None]
  - TREATMENT NONCOMPLIANCE [None]
